FAERS Safety Report 13628986 (Version 1)
Quarter: 2017Q2

REPORT INFORMATION
  Report Type: Spontaneous
  Country: US (occurrence: US)
  Receive Date: 20170531
  Receipt Date: 20170531
  Transmission Date: 20170830
  Serious: No
  Sender: FDA-Public Use
  Company Number: US-ASTELLAS-1066316

PATIENT
  Sex: Male

DRUGS (2)
  1. ACCUTANE [Concomitant]
     Active Substance: ISOTRETINOIN
     Indication: RASH
  2. TARCEVA [Suspect]
     Active Substance: ERLOTINIB HYDROCHLORIDE
     Indication: PRODUCT USED FOR UNKNOWN INDICATION
     Route: 065
     Dates: start: 2006

REACTIONS (2)
  - Erythema [Unknown]
  - Acne [Unknown]

NARRATIVE: CASE EVENT DATE: 20120505
